FAERS Safety Report 16042679 (Version 3)
Quarter: 2019Q3

REPORT INFORMATION
  Report Type: Report from Study
  Country: TR (occurrence: TR)
  Receive Date: 20190306
  Receipt Date: 20190722
  Transmission Date: 20191004
  Serious: Yes (Other)
  Sender: FDA-Public Use
  Company Number: TR-JAZZ-2018-TR-017173

PATIENT
  Age: 20 Year
  Sex: Female
  Weight: 70 kg

DRUGS (3)
  1. XYREM [Suspect]
     Active Substance: SODIUM OXYBATE
     Indication: NARCOLEPSY
     Dosage: 4.5 G, FREQUENCY UNKNOWN
     Route: 048
     Dates: start: 20181026
  2. EFFEXOR [Concomitant]
     Active Substance: VENLAFAXINE HYDROCHLORIDE
     Indication: PRODUCT USED FOR UNKNOWN INDICATION
  3. XYREM [Suspect]
     Active Substance: SODIUM OXYBATE
     Indication: CATAPLEXY
     Dosage: 6 G, FREQUENCY UNKNOWN
     Route: 048

REACTIONS (9)
  - Urinary incontinence [Not Recovered/Not Resolved]
  - Abnormal dreams [Recovered/Resolved]
  - Panic attack [Unknown]
  - Weight decreased [Not Recovered/Not Resolved]
  - Decreased appetite [Not Recovered/Not Resolved]
  - Alopecia [Not Recovered/Not Resolved]
  - Dyspnoea [Unknown]
  - Hair growth abnormal [Not Recovered/Not Resolved]
  - Somnambulism [Unknown]

NARRATIVE: CASE EVENT DATE: 20181026
